APPROVED DRUG PRODUCT: DOXYCYCLINE HYCLATE
Active Ingredient: DOXYCYCLINE HYCLATE
Strength: EQ 20MG BASE
Dosage Form/Route: TABLET;ORAL
Application: A065287 | Product #001 | TE Code: AB
Applicant: PHARMOBEDIENT CONSULTING LLC
Approved: Feb 28, 2006 | RLD: No | RS: No | Type: RX